FAERS Safety Report 5385101-6 (Version None)
Quarter: 2007Q3

REPORT INFORMATION
  Report Type: 
  Country: None (occurrence: None)
  Receive Date: 20070705
  Receipt Date: 20070705
  Transmission Date: 20080115
  Serious: Yes (Other)
  Sender: FDA-Public Use
  Company Number: None

PATIENT
  Age: 60 Year
  Sex: Female
  Weight: 50.8029 kg

DRUGS (7)
  1. PROPRANOLOL [Suspect]
     Indication: TACHYCARDIA
     Dosage: ONE CAPSULE DAILY
     Dates: start: 20070301, end: 20070625
  2. PREMARIN [Concomitant]
  3. ANTARA [Concomitant]
  4. ZETIA [Concomitant]
  5. PAPAVERINE [Concomitant]
  6. DONNATAL [Concomitant]
  7. MOBIC [Concomitant]

REACTIONS (2)
  - HEART RATE INCREASED [None]
  - PHARMACEUTICAL PRODUCT COMPLAINT [None]
